FAERS Safety Report 8884021 (Version 5)
Quarter: 2015Q4

REPORT INFORMATION
  Report Type: Spontaneous
  Country: US (occurrence: US)
  Receive Date: 20121104
  Receipt Date: 20151119
  Transmission Date: 20160305
  Serious: Yes (Hospitalization)
  Sender: FDA-Public Use
  Company Number: US-ASTRAZENECA-2012SE81398

PATIENT
  Age: 781 Month
  Sex: Female
  Weight: 69.9 kg

DRUGS (10)
  1. MULTIVITAMIN [Concomitant]
     Active Substance: VITAMINS
     Indication: VITAMIN SUPPLEMENTATION
  2. VENTOLIN HFA [Concomitant]
     Active Substance: ALBUTEROL SULFATE
     Indication: ASTHMA
  3. SINGULAIR [Concomitant]
     Active Substance: MONTELUKAST SODIUM
     Indication: ASTHMA
     Dosage: GENERIC
  4. ALBUTEROL. [Concomitant]
     Active Substance: ALBUTEROL
     Indication: WHEEZING
     Dosage: PRN
  5. PRILOSEC OTC [Suspect]
     Active Substance: OMEPRAZOLE MAGNESIUM
     Dosage: MORE THAN ONE DAILY
     Route: 048
  6. NEXIUM [Suspect]
     Active Substance: ESOMEPRAZOLE MAGNESIUM
     Indication: GASTROOESOPHAGEAL REFLUX DISEASE
     Route: 048
  7. SYNTHROID [Concomitant]
     Active Substance: LEVOTHYROXINE SODIUM
     Indication: THYROID DISORDER
     Dosage: 1.5 PILL
  8. PRILOSEC [Suspect]
     Active Substance: OMEPRAZOLE MAGNESIUM
     Dosage: MORE THAN ONE DAILY
     Route: 048
  9. ZYRTEC [Concomitant]
     Active Substance: CETIRIZINE HYDROCHLORIDE
     Indication: MULTIPLE ALLERGIES
     Dosage: 1 PILL HS
  10. VENTALIN [Concomitant]
     Indication: ASTHMA
     Dosage: 2 PUFFS 2 OR 3 TIMES PRN

REACTIONS (25)
  - Blood cholesterol decreased [Unknown]
  - Gastrooesophageal reflux disease [Unknown]
  - Feeding disorder [Unknown]
  - Large intestine polyp [Unknown]
  - Drug ineffective [Unknown]
  - Wheezing [Unknown]
  - Weight increased [Unknown]
  - Nephrolithiasis [Unknown]
  - Hyperchlorhydria [Unknown]
  - Multiple allergies [Unknown]
  - Contrast media allergy [Unknown]
  - Gastric disorder [Unknown]
  - Adverse event [Unknown]
  - Dyspepsia [Unknown]
  - Asthma [Unknown]
  - Blood triglycerides decreased [Unknown]
  - Blood triglycerides increased [Unknown]
  - Weight decreased [Unknown]
  - Eructation [Unknown]
  - Drug hypersensitivity [Unknown]
  - Intentional product misuse [Unknown]
  - Drug dose omission [Not Recovered/Not Resolved]
  - Blood cholesterol increased [Unknown]
  - Thyroid disorder [Unknown]
  - Gastric polyps [Unknown]

NARRATIVE: CASE EVENT DATE: 201211
